FAERS Safety Report 11537467 (Version 4)
Quarter: 2018Q1

REPORT INFORMATION
  Report Type: Spontaneous
  Country: US (occurrence: US)
  Receive Date: 20150922
  Receipt Date: 20180212
  Transmission Date: 20180508
  Serious: No
  Sender: FDA-Public Use
  Company Number: US-PFIZER INC-2015306702

PATIENT
  Age: 60 Year
  Sex: Female
  Weight: 86 kg

DRUGS (2)
  1. LYRICA [Suspect]
     Active Substance: PREGABALIN
     Indication: DIABETIC NEUROPATHY
     Dosage: 150 MG, 1X/DAY, AT BEDTIME
     Route: 048
     Dates: end: 20150903
  2. PERCOCET [Concomitant]
     Active Substance: ACETAMINOPHEN\OXYCODONE HYDROCHLORIDE
     Indication: BACK PAIN
     Dosage: UNK, DAILY

REACTIONS (9)
  - Back pain [Unknown]
  - Malaise [Unknown]
  - Lethargy [Unknown]
  - Condition aggravated [Unknown]
  - Pain in extremity [Unknown]
  - Pre-existing condition improved [Unknown]
  - Withdrawal syndrome [Not Recovered/Not Resolved]
  - Pain [Unknown]
  - Therapeutic response unexpected [Unknown]

NARRATIVE: CASE EVENT DATE: 201509
